FAERS Safety Report 17558022 (Version 1)
Quarter: 2020Q1

REPORT INFORMATION
  Report Type: Spontaneous
  Country: US (occurrence: US)
  Receive Date: 20200319
  Receipt Date: 20200319
  Transmission Date: 20200409
  Serious: Yes (Other)
  Sender: FDA-Public Use
  Company Number: US-JNJFOC-20200308658

PATIENT
  Age: 46 Year
  Sex: Female
  Weight: 96.25 kg

DRUGS (2)
  1. AVEENO BABY CALMING COMFORT [Suspect]
     Active Substance: DIMETHICONE
     Indication: PRODUCT USED FOR UNKNOWN INDICATION
     Route: 061
     Dates: end: 20200302
  2. AVEENO BABY CALMING COMFORT [Suspect]
     Active Substance: DIMETHICONE
     Route: 061
     Dates: end: 20200302

REACTIONS (2)
  - Product contamination physical [Unknown]
  - Application site laceration [Recovering/Resolving]

NARRATIVE: CASE EVENT DATE: 20200302
